FAERS Safety Report 25033171 (Version 2)
Quarter: 2025Q1

REPORT INFORMATION
  Report Type: Spontaneous
  Country: US (occurrence: US)
  Receive Date: 20250303
  Receipt Date: 20250319
  Transmission Date: 20250409
  Serious: No
  Sender: BRISTOL-MYERS SQUIBB COMPANY
  Company Number: US-BRISTOL-MYERS SQUIBB COMPANY-2025-030699

PATIENT
  Age: 93 Year
  Sex: Male
  Weight: 89 kg

DRUGS (3)
  1. ELIQUIS [Suspect]
     Active Substance: APIXABAN
     Indication: Deep vein thrombosis
     Dosage: TAKE 1 TABLET TWICE DAILY FOR 90 DAY
     Dates: start: 20241007
  2. VYNDAMAX [Suspect]
     Active Substance: TAFAMIDIS
     Indication: Chronic left ventricular failure
     Dosage: ONE 61 MG TAFAMIDIS CAPSULE ORALLY  ONCE DAILY QUANTITY #30 CAPSULES
     Route: 048
     Dates: start: 20240803
  3. VYNDAMAX [Suspect]
     Active Substance: TAFAMIDIS
     Indication: Cardiac amyloidosis
     Route: 048
     Dates: start: 20201210

REACTIONS (2)
  - Asthenia [Unknown]
  - Anaemia [Unknown]
